FAERS Safety Report 12084074 (Version 1)
Quarter: 2016Q1

REPORT INFORMATION
  Report Type: Other
  Country: SE (occurrence: SE)
  Receive Date: 20160217
  Receipt Date: 20160217
  Transmission Date: 20160526
  Serious: Yes (Other)
  Sender: FDA-Public Use
  Company Number: SE-MYLANLABS-2016M1005273

PATIENT

DRUGS (3)
  1. VISANNE [Concomitant]
     Active Substance: DIENOGEST
     Dosage: UNK
  2. DOLATRAMYL 100 MG DEPOTTABLETTER [Suspect]
     Active Substance: TRAMADOL
     Indication: ENDOMETRIOSIS
     Dosage: UNK (1-2 TABLETTER, MAX 3/DYGN)
     Dates: start: 20160127
  3. SEROQUEL [Concomitant]
     Active Substance: QUETIAPINE FUMARATE
     Dosage: UNK

REACTIONS (3)
  - Product substitution issue [Not Recovered/Not Resolved]
  - Product substitution issue [None]
  - Dysuria [Not Recovered/Not Resolved]

NARRATIVE: CASE EVENT DATE: 20160129
